FAERS Safety Report 19274747 (Version 1)
Quarter: 2021Q2

REPORT INFORMATION
  Report Type: Spontaneous
  Country: FR (occurrence: FR)
  Receive Date: 20210519
  Receipt Date: 20210519
  Transmission Date: 20210717
  Serious: Yes (Congenital Anomaly)
  Sender: FDA-Public Use
  Company Number: FR-PFIZER INC-2021520818

PATIENT
  Age: 1 Day
  Sex: Female

DRUGS (6)
  1. TERCIAN [CYAMEMAZINE TARTRATE] [Suspect]
     Active Substance: CYAMEMAZINE
     Indication: DEPRESSION
     Dosage: 150 MG
     Route: 064
     Dates: start: 202004, end: 202012
  2. OLANZAPINE. [Suspect]
     Active Substance: OLANZAPINE
     Indication: DEPRESSION
     Dosage: 10 MG
     Route: 064
     Dates: start: 202004, end: 202012
  3. LORMETAZEPAM [Suspect]
     Active Substance: LORMETAZEPAM
     Indication: DEPRESSION
     Dosage: 2 MG
     Route: 064
     Dates: start: 202004, end: 202012
  4. DEPAMIDE [Suspect]
     Active Substance: VALPROMIDE
     Indication: BORDERLINE PERSONALITY DISORDER
     Dosage: 2 DOSAGE FORMS
     Route: 064
     Dates: start: 202007, end: 202012
  5. VENLAFAXINE HCL [Suspect]
     Active Substance: VENLAFAXINE HYDROCHLORIDE
     Indication: DEPRESSION
     Dosage: 3 DOSAGE FORMS
     Route: 064
     Dates: start: 202004, end: 202012
  6. TEGRETOL [Suspect]
     Active Substance: CARBAMAZEPINE
     Indication: BORDERLINE PERSONALITY DISORDER
     Dosage: 2 DOSAGE FORMS
     Route: 064
     Dates: start: 202007, end: 202012

REACTIONS (5)
  - Maternal exposure during pregnancy [Not Recovered/Not Resolved]
  - Foot deformity [Not Recovered/Not Resolved]
  - Single umbilical artery [Not Recovered/Not Resolved]
  - Selective eating disorder [Not Recovered/Not Resolved]
  - Hypotonia neonatal [Not Recovered/Not Resolved]

NARRATIVE: CASE EVENT DATE: 202012
